FAERS Safety Report 15144049 (Version 1)
Quarter: 2018Q3

REPORT INFORMATION
  Report Type: Spontaneous
  Country: GB (occurrence: GB)
  Receive Date: 20180713
  Receipt Date: 20180713
  Transmission Date: 20181010
  Serious: Yes (Other)
  Sender: FDA-Public Use
  Company Number: GB-TEVA-2018-GB-925615

PATIENT
  Age: 74 Year
  Sex: Female
  Weight: 71.21 kg

DRUGS (10)
  1. COCODAMOL [Concomitant]
     Active Substance: ACETAMINOPHEN\CODEINE PHOSPHATE
     Dosage: 1?2 UP TO FOUR TIMES DAILY
     Route: 065
     Dates: start: 20180312, end: 20180416
  2. FLUCLOXACILLIN [Concomitant]
     Active Substance: FLUCLOXACILLIN
     Dosage: 2000 MILLIGRAM DAILY; TWO HOURS BEFORE OR AFTER FOOD
     Route: 065
     Dates: start: 20180516
  3. OMEPRAZOLE. [Concomitant]
     Active Substance: OMEPRAZOLE
     Route: 065
     Dates: start: 20180312, end: 20180518
  4. RELVAR ELLIPTA [Concomitant]
     Active Substance: FLUTICASONE FUROATE\VILANTEROL TRIFENATATE
     Indication: ASTHMA
     Dosage: 1 DOSAGE FORMS DAILY; 92MICROGRAMS/DOSE / 22MICROGRAMS
     Route: 055
     Dates: start: 20180306, end: 20180518
  5. PREDNISOLONE. [Concomitant]
     Active Substance: PREDNISOLONE
     Dosage: 5 MILLIGRAM DAILY; MORNING
     Route: 065
     Dates: start: 20180312, end: 20180518
  6. BARICITINIB [Concomitant]
     Active Substance: BARICITINIB
     Dosage: 2 MILLIGRAM DAILY;
     Route: 048
     Dates: start: 20180316, end: 20180518
  7. CLARITHROMYCIN. [Suspect]
     Active Substance: CLARITHROMYCIN
     Indication: DIARRHOEA
     Route: 042
  8. POVIDONE, IODINATED [Concomitant]
     Route: 065
     Dates: start: 20180517
  9. SUDOCREM [Concomitant]
     Active Substance: LANOLIN\ZINC OXIDE
     Dosage: AS DIRECTED
     Route: 065
     Dates: start: 20180515
  10. CARBOCISTEINE [Concomitant]
     Active Substance: CARBOCYSTEINE
     Dosage: 750 MILLIGRAM DAILY;
     Route: 065
     Dates: start: 20180403, end: 20180518

REACTIONS (1)
  - Long QT syndrome [Recovered/Resolved]
